FAERS Safety Report 10785518 (Version 3)
Quarter: 2015Q1

REPORT INFORMATION
  Report Type: Spontaneous
  Country: AT (occurrence: AT)
  Receive Date: 20150211
  Receipt Date: 20150319
  Transmission Date: 20150721
  Serious: Yes (Hospitalization, Other)
  Sender: FDA-Public Use
  Company Number: AT-ELI_LILLY_AND_COMPANY-AT201502000328

PATIENT
  Age: 42 Year
  Sex: Female

DRUGS (4)
  1. ZYPADHERA [Suspect]
     Active Substance: OLANZAPINE PAMOATE
     Dosage: 300 MG, MONTHLY (1/M)
     Route: 030
     Dates: start: 201411, end: 20150126
  2. TRITTICO [Concomitant]
     Active Substance: TRAZODONE HYDROCHLORIDE
     Indication: PRODUCT USED FOR UNKNOWN INDICATION
     Dosage: 150 MG, UNKNOWN
     Route: 065
     Dates: start: 2011
  3. CIPRALEX [Concomitant]
     Active Substance: ESCITALOPRAM OXALATE
     Indication: PRODUCT USED FOR UNKNOWN INDICATION
     Dosage: 20 MG, UNKNOWN
     Route: 065
     Dates: start: 2013
  4. ZYPADHERA [Suspect]
     Active Substance: OLANZAPINE PAMOATE
     Indication: SCHIZOPHRENIA
     Dosage: 1 DF, MONTHLY (1/M)
     Route: 030
     Dates: start: 201209, end: 201304

REACTIONS (10)
  - Delirium [Recovered/Resolved]
  - Vertigo [Recovered/Resolved]
  - Fatigue [Recovered/Resolved]
  - Hypotension [Recovered/Resolved]
  - Affect lability [Recovered/Resolved]
  - Agitation [Recovered/Resolved]
  - Stupor [Recovered/Resolved]
  - Dysarthria [Recovered/Resolved]
  - Disorientation [Recovered/Resolved]
  - Fear [Recovered/Resolved]

NARRATIVE: CASE EVENT DATE: 20150126
